FAERS Safety Report 8258806-7 (Version None)
Quarter: 2012Q1

REPORT INFORMATION
  Report Type: 
  Country: None (occurrence: None)
  Receive Date: 20120322
  Receipt Date: 20120206
  Transmission Date: 20120608
  Serious: Yes (Death, Hospitalization)
  Sender: FDA-Public Use
  Company Number: UTC-015261

PATIENT
  Age: 48 Year
  Sex: Male
  Weight: 107.3 kg

DRUGS (1)
  1. TYVASO [Suspect]
     Indication: COR PULMONALE CHRONIC
     Dosage: 18-54 MICROGRAMS (4 IN 1 D),INHALATION
     Route: 055
     Dates: start: 20111221

REACTIONS (2)
  - DEATH [None]
  - VARICES OESOPHAGEAL [None]
